FAERS Safety Report 9017100 (Version 2)
Quarter: 2013Q3

REPORT INFORMATION
  Report Type: Report from Study
  Country: NL (occurrence: NL)
  Receive Date: 20130117
  Receipt Date: 20130709
  Transmission Date: 20140515
  Serious: Yes (Other)
  Sender: FDA-Public Use
  Company Number: NL-GENZYME-CLOF-1002444

PATIENT
  Age: 58 Year
  Sex: Male
  Weight: 115 kg

DRUGS (9)
  1. EVOLTRA [Suspect]
     Indication: ACUTE MYELOID LEUKAEMIA
     Dosage: 23 MG, UNK
     Route: 042
     Dates: start: 20121123
  2. CYTARABINE [Suspect]
     Indication: ACUTE MYELOID LEUKAEMIA
     Dosage: 475 MG, UNK
     Route: 042
     Dates: start: 20121123
  3. IDARUBICIN [Suspect]
     Indication: ACUTE MYELOID LEUKAEMIA
     Dosage: 28 MG, UNK
     Route: 042
     Dates: start: 20121123
  4. CIPROFLOXACIN [Concomitant]
     Indication: ANTI-INFECTIVE THERAPY
     Dosage: 500 MG, BID
     Route: 048
     Dates: start: 20121119
  5. FLUCONAZOLE [Concomitant]
     Indication: ANTI-INFECTIVE THERAPY
     Dosage: 150 MG, QD
     Route: 048
     Dates: start: 20121119
  6. PHENOBARBITAL [Concomitant]
     Indication: EPILEPSY
     Dosage: 35 MG, BID
     Route: 048
     Dates: start: 20121119
  7. LEVETIRACETAM [Concomitant]
     Indication: EPILEPSY
     Dosage: 250 MG, BID
     Route: 048
     Dates: start: 20121119
  8. VALPRO [Concomitant]
     Indication: EPILEPSY
     Dosage: 250 MG, BID
     Route: 048
     Dates: start: 20121119
  9. PIPERACILLIN W [Concomitant]
     Indication: FEBRILE NEUTROPENIA
     Dosage: 4.5 G, TID
     Route: 042
     Dates: start: 20121204

REACTIONS (3)
  - Arthritis infective [Unknown]
  - Febrile neutropenia [Unknown]
  - Myositis [Recovered/Resolved]
